FAERS Safety Report 10716248 (Version 1)
Quarter: 2015Q1

REPORT INFORMATION
  Report Type: Spontaneous
  Country: US (occurrence: None)
  Receive Date: 20150115
  Receipt Date: 20150115
  Transmission Date: 20150721
  Serious: No
  Sender: FDA-Public Use
  Company Number: None

PATIENT
  Age: 73 Year
  Sex: Male
  Weight: 55.34 kg

DRUGS (1)
  1. TRAMADOL HCL 50MG TABLET AMNEAL PHARMACEUTICAL [Suspect]
     Active Substance: TRAMADOL HYDROCHLORIDE
     Indication: PAIN IN EXTREMITY
     Route: 048
     Dates: start: 20141201, end: 20141202

REACTIONS (1)
  - Tinnitus [None]

NARRATIVE: CASE EVENT DATE: 20141202
